FAERS Safety Report 23307235 (Version 1)
Quarter: 2023Q4

REPORT INFORMATION
  Report Type: Spontaneous
  Country: SI (occurrence: SI)
  Receive Date: 20231218
  Receipt Date: 20231218
  Transmission Date: 20240110
  Serious: Yes (Hospitalization)
  Sender: FDA-Public Use
  Company Number: None

PATIENT
  Age: 62 Year
  Sex: Female

DRUGS (10)
  1. PEMETREXED [Suspect]
     Active Substance: PEMETREXED
     Indication: Non-small cell lung cancer metastatic
     Dosage: STRENGTH: 25 MG/ML, DOSE: 900MG
     Dates: start: 20230822, end: 20230822
  2. CARBOPLATIN [Suspect]
     Active Substance: CARBOPLATIN
     Indication: Non-small cell lung cancer metastatic
     Dosage: STRENGTH: 10 MG/ML, DOSE: 550 MG
     Dates: start: 20230822, end: 20230822
  3. YERVOY [Suspect]
     Active Substance: IPILIMUMAB
     Indication: Non-small cell lung cancer metastatic
     Dosage: STRENGTH: 5 MG/ML, DOSE: 70 MG
     Dates: start: 20230822, end: 20230822
  4. NIVOLUMAB [Suspect]
     Active Substance: NIVOLUMAB
     Indication: Non-small cell lung cancer metastatic
     Dosage: STRENGTH: 10 MG/ML, 10 ML?STRENGTH: 10 MG/ML, 4 ML, DOSE: 360 MG
     Dates: start: 20230913, end: 20230913
  5. FOLIC ACID [Concomitant]
     Active Substance: FOLIC ACID
     Indication: Prophylaxis
     Dosage: 0.4 - 4MG, 2X1
  6. YERVOY [Suspect]
     Active Substance: IPILIMUMAB
     Indication: Non-small cell lung cancer metastatic
     Dosage: STRENGTH: 5 MG/ML, DOSE: 70 MG
     Dates: start: 20231005, end: 20231005
  7. PEMETREXED [Suspect]
     Active Substance: PEMETREXED
     Indication: Non-small cell lung cancer metastatic
     Dosage: STRENGTH: 25 MG/ML, DOSE: 900MG
     Dates: start: 20230913, end: 20230913
  8. NIVOLUMAB [Suspect]
     Active Substance: NIVOLUMAB
     Indication: Non-small cell lung cancer metastatic
     Dosage: STRENGTH: 10 MG/ML, 10 ML?STRENGTH: 10 MG/ML, 4 ML, DOSE: 360 MG
     Dates: start: 20230822, end: 20230822
  9. NIVOLUMAB [Suspect]
     Active Substance: NIVOLUMAB
     Indication: Non-small cell lung cancer metastatic
     Dosage: STRENGTH: 10 MG/ML, 10 ML?STRENGTH: 10 MG/ML, 4 ML, DOSE: 360 MG
     Dates: start: 20231005, end: 20231005
  10. CARBOPLATIN [Suspect]
     Active Substance: CARBOPLATIN
     Indication: Non-small cell lung cancer metastatic
     Dosage: STRENGTH: 10 MG/ML, DOSE: 550 MG
     Dates: start: 20230913, end: 20230913

REACTIONS (1)
  - Cytokine release syndrome [Recovering/Resolving]

NARRATIVE: CASE EVENT DATE: 20231019
